FAERS Safety Report 10167493 (Version 1)
Quarter: 2014Q2

REPORT INFORMATION
  Report Type: Spontaneous
  Country: US (occurrence: US)
  Receive Date: 20140512
  Receipt Date: 20140512
  Transmission Date: 20141212
  Serious: No
  Sender: FDA-Public Use
  Company Number: US-009507513-1404USA013364

PATIENT
  Sex: Female

DRUGS (3)
  1. CLARITIN [Suspect]
     Indication: HYPERSENSITIVITY
     Dosage: UNK, UNKNOWN
     Route: 048
     Dates: start: 20140410
  2. CLARITIN [Suspect]
     Indication: THROAT IRRITATION
     Dosage: 10 MG, ONCE
     Route: 048
     Dates: start: 20140411
  3. CLARITIN [Suspect]
     Dosage: UNK

REACTIONS (2)
  - Overdose [Unknown]
  - Drug effect decreased [Unknown]
